FAERS Safety Report 4735848-7 (Version None)
Quarter: 2005Q3

REPORT INFORMATION
  Report Type: 
  Country: None (occurrence: None)
  Receive Date: 20050803
  Receipt Date: 20050803
  Transmission Date: 20060218
  Serious: Yes (Other)
  Sender: FDA-Public Use
  Company Number: None

PATIENT
  Age: 24 Year
  Sex: Female
  Weight: 73.9363 kg

DRUGS (5)
  1. TB TINE TEST [Suspect]
     Indication: JOB CHANGE
     Dosage: 1 INJECTION UNDER SKIN;  1 INJECTION UNDER SKIN
     Route: 058
     Dates: start: 20050328
  2. TB TINE TEST [Suspect]
     Indication: JOB CHANGE
     Dosage: 1 INJECTION UNDER SKIN;  1 INJECTION UNDER SKIN
     Route: 058
     Dates: start: 20050412
  3. NATURE THYROID [Concomitant]
  4. SAL PALMETTO [Concomitant]
  5. GINKO BILOBA [Concomitant]

REACTIONS (6)
  - DIPLOPIA [None]
  - FACIAL PALSY [None]
  - OPHTHALMOPLEGIA [None]
  - SENSORY DISTURBANCE [None]
  - VERTIGO [None]
  - VISUAL DISTURBANCE [None]
